FAERS Safety Report 20779753 (Version 1)
Quarter: 2022Q2

REPORT INFORMATION
  Report Type: Spontaneous
  Country: CN (occurrence: CN)
  Receive Date: 20220503
  Receipt Date: 20220503
  Transmission Date: 20220721
  Serious: Yes (Other)
  Sender: FDA-Public Use
  Company Number: CN-BAXTER-2022BAX009630

PATIENT
  Age: 59 Year
  Sex: Female
  Weight: 60 kg

DRUGS (10)
  1. CYCLOPHOSPHAMIDE [Suspect]
     Active Substance: CYCLOPHOSPHAMIDE
     Indication: Neoplasm malignant
     Route: 065
  2. CYCLOPHOSPHAMIDE [Suspect]
     Active Substance: CYCLOPHOSPHAMIDE
     Indication: Dermatomyositis
     Dosage: CYCLOPHOSPHAMIDE FOR INJECTION (0.8 G/TIME) + 0.9% SODIUM CHLORIDE INJECTION (250 ML)
     Route: 041
     Dates: start: 20220421, end: 20220421
  3. CYCLOPHOSPHAMIDE [Suspect]
     Active Substance: CYCLOPHOSPHAMIDE
     Indication: Interstitial lung disease
  4. SODIUM CHLORIDE [Suspect]
     Active Substance: SODIUM CHLORIDE
     Indication: Medication dilution
     Dosage: CYCLOPHOSPHAMIDE FOR INJECTION (0.8 G/TIME) ADDED TO 0.9% SODIUM CHLORIDE INJECTION (250 ML)
     Route: 041
     Dates: start: 20220421, end: 20220421
  5. PIRFENIDONE [Concomitant]
     Active Substance: PIRFENIDONE
     Indication: Dermatomyositis
     Route: 065
  6. PIRFENIDONE [Concomitant]
     Active Substance: PIRFENIDONE
     Indication: Interstitial lung disease
  7. CALCIUM [Concomitant]
     Active Substance: CALCIUM
     Indication: Dermatomyositis
     Dosage: DOSAGE FORM: TABLETS
     Route: 065
  8. CALCIUM [Concomitant]
     Active Substance: CALCIUM
     Indication: Interstitial lung disease
  9. CALCITRIOL [Concomitant]
     Active Substance: CALCITRIOL
     Indication: Dermatomyositis
     Route: 065
  10. CALCITRIOL [Concomitant]
     Active Substance: CALCITRIOL
     Indication: Interstitial lung disease

REACTIONS (10)
  - Chest discomfort [Recovering/Resolving]
  - Palpitations [Recovering/Resolving]
  - Chest pain [Recovering/Resolving]
  - Hypertension [Recovering/Resolving]
  - Nausea [Recovering/Resolving]
  - Vomiting [Recovering/Resolving]
  - Anxiety [Unknown]
  - Dysphoria [Unknown]
  - Feeding disorder [Unknown]
  - Discomfort [Unknown]

NARRATIVE: CASE EVENT DATE: 20220422
